FAERS Safety Report 5958899-3 (Version None)
Quarter: 2008Q4

REPORT INFORMATION
  Report Type: 
  Country: None (occurrence: None)
  Receive Date: 20081118
  Receipt Date: 20081103
  Transmission Date: 20090506
  Serious: Yes (Other)
  Sender: FDA-Public Use
  Company Number: DSA_32547_2008

PATIENT
  Sex: Male

DRUGS (6)
  1. ENALAPRIL MALEATE [Suspect]
     Indication: DRUG USE FOR UNKNOWN INDICATION
     Dosage: DF ORAL
     Route: 048
  2. LIPITOR [Suspect]
     Indication: DRUG USE FOR UNKNOWN INDICATION
     Dosage: DF
  3. ZOCOR [Suspect]
     Indication: DRUG USE FOR UNKNOWN INDICATION
     Dosage: DF ORAL
     Route: 048
  4. NORVASC [Suspect]
     Indication: DRUG USE FOR UNKNOWN INDICATION
     Dosage: DF
  5. GENERAL NUTRIENTS [Suspect]
     Indication: DRUG USE FOR UNKNOWN INDICATION
     Dosage: DF
  6. YEAST [Suspect]
     Indication: DRUG USE FOR UNKNOWN INDICATION
     Dosage: DF

REACTIONS (4)
  - ASTHENIA [None]
  - NEUROPATHY PERIPHERAL [None]
  - PAIN IN EXTREMITY [None]
  - TYPE 1 DIABETES MELLITUS [None]
